FAERS Safety Report 10165581 (Version 1)
Quarter: 2014Q2

REPORT INFORMATION
  Report Type: Spontaneous
  Country: US (occurrence: US)
  Receive Date: 20140510
  Receipt Date: 20140510
  Transmission Date: 20141212
  Serious: No
  Sender: FDA-Public Use
  Company Number: US-BRISTOL-MYERS SQUIBB COMPANY-20553830

PATIENT
  Age: 53 Year
  Sex: Male

DRUGS (4)
  1. BYDUREON [Suspect]
     Indication: TYPE 2 DIABETES MELLITUS
  2. METFORMIN HCL [Concomitant]
     Route: 048
  3. LANTUS [Concomitant]
  4. INSULIN [Concomitant]
     Dosage: 1DF=40UNITS
     Route: 058

REACTIONS (1)
  - Injection site nodule [Recovering/Resolving]
